FAERS Safety Report 16843495 (Version 3)
Quarter: 2019Q4

REPORT INFORMATION
  Report Type: Spontaneous
  Country: CA (occurrence: CA)
  Receive Date: 20190924
  Receipt Date: 20191028
  Transmission Date: 20200122
  Serious: Yes (Other)
  Sender: FDA-Public Use
  Company Number: CA-OCTA-NGAM17519CA

PATIENT
  Age: 51 Year
  Sex: Female

DRUGS (1)
  1. PANZYGA [Suspect]
     Active Substance: HUMAN IMMUNOGLOBULIN G
     Indication: CHRONIC INFLAMMATORY DEMYELINATING POLYRADICULONEUROPATHY
     Route: 042
     Dates: start: 20190821, end: 20190821

REACTIONS (6)
  - Chills [Recovered/Resolved]
  - Product contamination microbial [Unknown]
  - Headache [Recovered/Resolved]
  - Suspected transmission of an infectious agent via product [Unknown]
  - Febrile nonhaemolytic transfusion reaction [Recovered/Resolved]
  - Pyrexia [Recovered/Resolved]

NARRATIVE: CASE EVENT DATE: 20190821
